FAERS Safety Report 21620912 (Version 2)
Quarter: 2022Q4

REPORT INFORMATION
  Report Type: Report from Study
  Country: US (occurrence: US)
  Receive Date: 20221121
  Receipt Date: 20221128
  Transmission Date: 20230113
  Serious: No
  Sender: FDA-Public Use
  Company Number: US-ABBVIE-4170794

PATIENT
  Age: 47 Year
  Sex: Female

DRUGS (20)
  1. SKYRIZI [Suspect]
     Active Substance: RISANKIZUMAB-RZAA
     Indication: Crohn^s disease
     Dosage: 360 MG/2.4ML
     Route: 058
  2. 200 mg Celecoxib [Concomitant]
     Indication: Product used for unknown indication
  3. 20 mg Prednisone [Concomitant]
     Indication: Product used for unknown indication
  4. PROMETHAZINE [Concomitant]
     Active Substance: PROMETHAZINE HYDROCHLORIDE
     Indication: Product used for unknown indication
     Dosage: 25MG;
  5. VITAMIN D CAP 50000UNT [Concomitant]
     Indication: Product used for unknown indication
     Dosage: 50000 UNIT
  6. SUMATRIPTAN TAB 50MG [Concomitant]
     Indication: Product used for unknown indication
     Dosage: 50 MG
  7. METHOTREXATE [Concomitant]
     Active Substance: METHOTREXATE
     Indication: Product used for unknown indication
     Dosage: INJ 50MG/2ML
  8. 2.5 mg Methotrexate [Concomitant]
     Indication: Product used for unknown indication
  9. METHYLPRED TAB 4MG [Concomitant]
     Indication: Product used for unknown indication
     Dosage: 4 MG
  10. HUMIRA [Concomitant]
     Active Substance: ADALIMUMAB
     Indication: Product used for unknown indication
     Dosage: 40MG/0.4ML PEN
  11. FLUCONAZOLE [Concomitant]
     Active Substance: FLUCONAZOLE
     Indication: Product used for unknown indication
     Dosage: 150MG
  12. AZITHROMYCIN [Concomitant]
     Active Substance: AZITHROMYCIN
     Indication: Product used for unknown indication
     Dosage: TAB 500MG
  13. 60 mg Duloxetine [Concomitant]
     Indication: Product used for unknown indication
     Dosage: 60MG
  14. FOLIC ACID [Concomitant]
     Active Substance: FOLIC ACID
     Indication: Product used for unknown indication
     Dosage: 1MG;
  15. DULOXETINE [Concomitant]
     Active Substance: DULOXETINE
     Indication: Product used for unknown indication
     Dosage: 30MG
  16. 10 mg Cyclobenzaprin [Concomitant]
     Indication: Product used for unknown indication
  17. GAVILYTE G [Concomitant]
     Active Substance: POLYETHYLENE GLYCOL 3350\POTASSIUM CHLORIDE\SODIUM BICARBONATE\SODIUM CHLORIDE\SODIUM SULFATE
     Indication: Product used for unknown indication
     Dosage: 1MG
  18. FLUTICASONE [Concomitant]
     Active Substance: FLUTICASONE
     Indication: Product used for unknown indication
     Dosage: 50 MICROGRAM
  19. 10 mg Rizatriptan [Concomitant]
     Indication: Product used for unknown indication
  20. PREDNISONE [Concomitant]
     Active Substance: PREDNISONE
     Indication: Product used for unknown indication
     Dosage: 10MG

REACTIONS (3)
  - Irritable bowel syndrome [Not Recovered/Not Resolved]
  - Crohn^s disease [Not Recovered/Not Resolved]
  - Loss of personal independence in daily activities [Unknown]

NARRATIVE: CASE EVENT DATE: 20221018
